FAERS Safety Report 6331448-6 (Version None)
Quarter: 2009Q3

REPORT INFORMATION
  Report Type: 
  Country: None (occurrence: None)
  Receive Date: 20090827
  Receipt Date: 20090819
  Transmission Date: 20100115
  Serious: Yes (Hospitalization)
  Sender: FDA-Public Use
  Company Number: US-GILEAD-2009-0023752

PATIENT
  Sex: Female
  Weight: 72.64 kg

DRUGS (11)
  1. LETAIRIS [Suspect]
     Indication: PULMONARY ARTERIAL HYPERTENSION
     Route: 048
     Dates: start: 20090701
  2. ACTONEL [Concomitant]
  3. POTASSIUM CHLORIDE [Concomitant]
  4. CALCIUM +D [Concomitant]
  5. REVATIO [Concomitant]
  6. ALBUTEROL [Concomitant]
  7. TRAMADOL HCL [Concomitant]
  8. BUMETANIDE [Concomitant]
  9. ALDACTONE [Concomitant]
  10. SUCRALFATE [Concomitant]
  11. SIMETHICONE [Concomitant]

REACTIONS (2)
  - PNEUMONIA [None]
  - RESPIRATORY DISTRESS [None]
